FAERS Safety Report 7221444-9 (Version None)
Quarter: 2011Q1

REPORT INFORMATION
  Report Type: 
  Country: None (occurrence: None)
  Receive Date: 20110112
  Receipt Date: 20110104
  Transmission Date: 20110831
  Serious: Yes (Other)
  Sender: FDA-Public Use
  Company Number: JP-ABBOTT-10P-087-0693736-00

PATIENT
  Sex: Female
  Weight: 57.2 kg

DRUGS (12)
  1. CEFZON [Suspect]
     Route: 048
     Dates: start: 20090715, end: 20090819
  2. CEFZON [Suspect]
     Indication: ARTHRITIS BACTERIAL
     Route: 042
  3. COCARL [Concomitant]
     Indication: PRODUCT USED FOR UNKNOWN INDICATION
     Dates: start: 20090304, end: 20090509
  4. CEFZON [Suspect]
     Route: 048
     Dates: start: 20090422, end: 20090701
  5. UTEMERIN [Concomitant]
     Indication: PRODUCT USED FOR UNKNOWN INDICATION
     Dates: start: 20090502, end: 20090506
  6. PENTAZOCINE LACTATE [Concomitant]
     Indication: PRODUCT USED FOR UNKNOWN INDICATION
     Dates: start: 20090303, end: 20090419
  7. THREENOFEN [Concomitant]
     Indication: PRODUCT USED FOR UNKNOWN INDICATION
     Dates: start: 20090519, end: 20090531
  8. MAGMITT [Concomitant]
     Indication: PRODUCT USED FOR UNKNOWN INDICATION
     Dates: start: 20090302, end: 20090418
  9. PIPERACILLIN [Concomitant]
     Indication: PRODUCT USED FOR UNKNOWN INDICATION
  10. PENMALIN [Concomitant]
     Indication: PRODUCT USED FOR UNKNOWN INDICATION
     Dates: start: 20090402, end: 20090518
  11. LANDSEN [Concomitant]
     Indication: PRODUCT USED FOR UNKNOWN INDICATION
     Dates: start: 20090304, end: 20090412
  12. CEFZON [Suspect]
     Route: 042

REACTIONS (3)
  - THREATENED LABOUR [None]
  - IRON DEFICIENCY ANAEMIA [None]
  - DRUG EXPOSURE DURING PREGNANCY [None]
